FAERS Safety Report 6738303-8 (Version None)
Quarter: 2010Q2

REPORT INFORMATION
  Report Type: 
  Country: None (occurrence: None)
  Receive Date: 20100524
  Receipt Date: 20100511
  Transmission Date: 20101027
  Serious: Yes (Hospitalization, Other)
  Sender: FDA-Public Use
  Company Number: JP-GENENTECH-286118

PATIENT
  Age: 83 Year
  Sex: Male

DRUGS (5)
  1. LUCENTIS [Suspect]
     Indication: MACULAR DEGENERATION
     Dosage: 0.05 ML, UNK
     Route: 031
     Dates: start: 20090424
  2. LUCENTIS [Suspect]
     Dosage: 0.05 ML, UNK
     Route: 031
     Dates: start: 20090522
  3. AVASTIN [Suspect]
     Indication: MACULAR DEGENERATION
     Dosage: UNK
     Route: 031
     Dates: start: 20090213
  4. AVASTIN [Suspect]
     Dosage: UNK
     Route: 031
     Dates: start: 20090323
  5. TRIAMCINOLONE ACETONIDE [Concomitant]
     Indication: DRUG USE FOR UNKNOWN INDICATION
     Dosage: UNK
     Dates: start: 20090213

REACTIONS (7)
  - CYTOMEGALOVIRUS CHORIORETINITIS [None]
  - EYE DISORDER [None]
  - EYE INFLAMMATION [None]
  - NECROSIS [None]
  - RETINAL DISORDER [None]
  - VASCULITIS [None]
  - VITRECTOMY [None]
